FAERS Safety Report 6040015-3 (Version None)
Quarter: 2009Q1

REPORT INFORMATION
  Report Type: 
  Country: None (occurrence: None)
  Receive Date: 20090116
  Receipt Date: 20071116
  Transmission Date: 20090719
  Serious: No
  Sender: FDA-Public Use
  Company Number: US-BRISTOL-MYERS SQUIBB COMPANY-13985817

PATIENT
  Age: 17 Year
  Sex: Male
  Weight: 143 kg

DRUGS (1)
  1. ABILIFY [Suspect]
     Indication: ASPERGER'S DISORDER
     Route: 048

REACTIONS (4)
  - DECREASED ACTIVITY [None]
  - FEELING JITTERY [None]
  - INSOMNIA [None]
  - SOMNOLENCE [None]
